FAERS Safety Report 7738617-9 (Version None)
Quarter: 2011Q3

REPORT INFORMATION
  Report Type: 
  Country: None (occurrence: None)
  Receive Date: 20110908
  Receipt Date: 20110907
  Transmission Date: 20111222
  Serious: Yes (Hospitalization)
  Sender: FDA-Public Use
  Company Number: AU-B.I. PHARMACEUTICALS,INC./RIDGEFIELD-2011-AU-01074AU

PATIENT
  Sex: Female
  Weight: 54 kg

DRUGS (8)
  1. DIAMICRON MR [Concomitant]
     Dosage: 30 MG
  2. PRADAXA [Suspect]
     Indication: ATRIAL FIBRILLATION
  3. PERINDOPRIL ERBUMINE [Concomitant]
     Dosage: 10 MG
     Dates: start: 20110101
  4. SOTALOL HYDROCHLORIDE [Concomitant]
     Dosage: 160 MG
  5. NEXIUM [Concomitant]
     Dosage: 20 MG
  6. MINIPRESS [Concomitant]
     Dosage: 2 MG
     Dates: start: 20101201
  7. PRADAXA [Suspect]
     Indication: CEREBROVASCULAR ACCIDENT PROPHYLAXIS
     Dosage: 220 MG
     Dates: start: 20110711, end: 20110813
  8. LIPEX [Concomitant]
     Dosage: 20 MG

REACTIONS (3)
  - SUBDURAL HAEMATOMA [None]
  - HEADACHE [None]
  - SYNCOPE [None]
